FAERS Safety Report 21304177 (Version 1)
Quarter: 2022Q3

REPORT INFORMATION
  Report Type: Report from Study
  Country: HU (occurrence: HU)
  Receive Date: 20220907
  Receipt Date: 20220907
  Transmission Date: 20221027
  Serious: Yes (Hospitalization, Other)
  Sender: FDA-Public Use
  Company Number: HU-JNJFOC-20220903561

PATIENT
  Age: 80 Year
  Sex: Male
  Weight: 85.2 kg

DRUGS (19)
  1. BORTEZOMIB [Suspect]
     Active Substance: BORTEZOMIB
     Indication: Plasma cell myeloma
     Dosage: 2.5 MILLIGRAM
     Route: 058
     Dates: start: 20170213, end: 20170317
  2. BORTEZOMIB [Suspect]
     Active Substance: BORTEZOMIB
     Dosage: 2 MILLIGRAM
     Route: 058
     Dates: start: 20170330
  3. DEXAMETHASONE [Suspect]
     Active Substance: DEXAMETHASONE
     Indication: Plasma cell myeloma
     Dosage: 12 MILLIGRAM
     Route: 048
     Dates: start: 20170213, end: 20170314
  4. VENETOCLAX [Suspect]
     Active Substance: VENETOCLAX
     Indication: Plasma cell myeloma
     Dosage: 800 MILLIGRAM, QD
     Route: 048
     Dates: start: 20170213, end: 20170319
  5. VENETOCLAX [Suspect]
     Active Substance: VENETOCLAX
     Dosage: 800 MILLIGRAM, QD
     Route: 048
     Dates: start: 20170330
  6. INSULIN HUMAN;INSULIN HUMAN INJECTION, ISOPHANE [Concomitant]
     Indication: Diabetes mellitus
     Dosage: 55 INTERNATIONAL UNIT, QD
     Route: 058
     Dates: start: 2015, end: 20170225
  7. PENTOXIFYLLINE [Concomitant]
     Active Substance: PENTOXIFYLLINE
     Indication: Prophylaxis
     Dosage: 400 MILLIGRAM, BID
     Route: 048
     Dates: start: 2013
  8. ROSUVASTATIN [Concomitant]
     Active Substance: ROSUVASTATIN
     Indication: Prophylaxis
     Dosage: 15 MILLIGRAM, QD
     Route: 048
     Dates: start: 2013
  9. ALPRAZOLAM [Concomitant]
     Active Substance: ALPRAZOLAM
     Indication: Insomnia
     Dosage: 0.25 MILLIGRAM, QD
     Route: 048
     Dates: start: 2011
  10. ACYCLOVIR [Concomitant]
     Active Substance: ACYCLOVIR
     Indication: Herpes virus infection
     Dosage: 200 MILLIGRAM, QOD
     Route: 048
     Dates: start: 20170224
  11. Noacid [Concomitant]
     Indication: Prophylaxis against gastrointestinal ulcer
     Dosage: 20 MILLIGRAM, QD
     Route: 048
     Dates: start: 20170224
  12. INSULIN HUMAN [Concomitant]
     Active Substance: INSULIN HUMAN
     Indication: Steroid diabetes
     Dosage: UNK
     Route: 058
     Dates: start: 20170225, end: 20170306
  13. INSULIN HUMAN [Concomitant]
     Active Substance: INSULIN HUMAN
     Dosage: UNK
     Route: 058
     Dates: start: 20170306, end: 20170323
  14. INSULIN HUMAN [Concomitant]
     Active Substance: INSULIN HUMAN
     Dosage: UNK
     Route: 058
     Dates: start: 20170323
  15. INSULIN HUMAN [Concomitant]
     Active Substance: INSULIN HUMAN
     Indication: Steroid diabetes
     Dosage: UNK
     Route: 058
     Dates: start: 20170225, end: 20170306
  16. INSULIN HUMAN [Concomitant]
     Active Substance: INSULIN HUMAN
     Dosage: UNK
     Route: 058
     Dates: start: 20170306, end: 20170323
  17. INSULIN HUMAN [Concomitant]
     Active Substance: INSULIN HUMAN
     Dosage: UNK
     Route: 058
     Dates: start: 20170323
  18. CALCIVID [Concomitant]
     Indication: Hypocalcaemia
     Dosage: UNK, QOD
     Route: 048
     Dates: start: 20170330
  19. CALCIVID [Concomitant]
     Indication: Hypophosphataemia

REACTIONS (4)
  - Insomnia [Unknown]
  - Mood altered [Unknown]
  - Diabetes mellitus [Unknown]
  - Muscular weakness [Recovered/Resolved]

NARRATIVE: CASE EVENT DATE: 20170316
